FAERS Safety Report 8941987 (Version 1)
Quarter: 2012Q4

REPORT INFORMATION
  Report Type: 
  Country: US (occurrence: US)
  Receive Date: 20121203
  Receipt Date: 20121203
  Transmission Date: 20130627
  Serious: No
  Sender: FDA-Public Use
  Company Number: US-009507513-1212USA000399

PATIENT
  Age: 4 Year
  Sex: Male

DRUGS (1)
  1. CLARITIN REDITABS [Suspect]
     Indication: HYPERSENSITIVITY
     Dosage: 10 mg, Once
     Route: 048
     Dates: start: 20121022

REACTIONS (2)
  - Drug administered to patient of inappropriate age [Recovering/Resolving]
  - Off label use [Recovering/Resolving]
